FAERS Safety Report 8827994 (Version 1)
Quarter: 2012Q4

REPORT INFORMATION
  Report Type: Report from Study
  Country: CA (occurrence: CA)
  Receive Date: 20121005
  Receipt Date: 20121005
  Transmission Date: 20130627
  Serious: Yes (Life-Threatening)
  Sender: FDA-Public Use
  Company Number: CA-JNJFOC-20120911998

PATIENT
  Age: 45 Year
  Sex: Male
  Weight: 69.5 kg

DRUGS (1)
  1. REMICADE [Suspect]
     Indication: CROHN^S DISEASE
     Dosage: once in 7 to 9 weeks
     Route: 042
     Dates: start: 2006, end: 20120522

REACTIONS (1)
  - Adenocarcinoma of colon [Not Recovered/Not Resolved]
